FAERS Safety Report 9498391 (Version 1)
Quarter: 2013Q3

REPORT INFORMATION
  Report Type: Spontaneous
  Country: US (occurrence: None)
  Receive Date: 20130903
  Receipt Date: 20130903
  Transmission Date: 20140515
  Serious: No
  Sender: FDA-Public Use
  Company Number: None

PATIENT
  Sex: 0

DRUGS (1)
  1. HEPARIN [Suspect]
     Indication: CORONARY ARTERY BYPASS
     Dosage: DURING CABG SURGERY?

REACTIONS (2)
  - Product quality issue [None]
  - Coagulation time abnormal [None]
